FAERS Safety Report 9203596 (Version 1)
Quarter: 2013Q1

REPORT INFORMATION
  Report Type: Spontaneous
  Country: GB (occurrence: None)
  Receive Date: 20130329
  Receipt Date: 20130329
  Transmission Date: 20140127
  Serious: Yes (Other)
  Sender: FDA-Public Use
  Company Number: GER/UKI/13/0028716

PATIENT
  Age: 61 Year
  Sex: Male
  Weight: 101 kg

DRUGS (2)
  1. ATORVASTATIN (ATORVASTATIN) [Suspect]
     Indication: BLOOD CHOLESTEROL INCREASED
     Dates: start: 201302, end: 20130305
  2. ATENOLOL (ATENOLOL) [Suspect]
     Indication: HYPERTENSION
     Dosage: 2 IN 1  D

REACTIONS (5)
  - Myalgia [None]
  - Arthralgia [None]
  - Pruritus [None]
  - Dry skin [None]
  - Rash [None]
